FAERS Safety Report 9447354 (Version 1)
Quarter: 2013Q3

REPORT INFORMATION
  Report Type: Spontaneous
  Country: JP (occurrence: JP)
  Receive Date: 20130808
  Receipt Date: 20130808
  Transmission Date: 20140515
  Serious: Yes (Other)
  Sender: FDA-Public Use
  Company Number: JP-009507513-1308JPN001340

PATIENT
  Age: 90 Year
  Sex: Female

DRUGS (1)
  1. GASTER D [Suspect]
     Route: 048

REACTIONS (2)
  - Dementia [Not Recovered/Not Resolved]
  - Bradycardia [Not Recovered/Not Resolved]
